FAERS Safety Report 13401414 (Version 1)
Quarter: 2017Q2

REPORT INFORMATION
  Report Type: Spontaneous
  Country: US (occurrence: US)
  Receive Date: 20170404
  Receipt Date: 20170404
  Transmission Date: 20170830
  Serious: Yes (Life-Threatening, Hospitalization, Other)
  Sender: FDA-Public Use
  Company Number: US-SAOL THERAPEUTICS-0700927989

PATIENT
  Sex: Male

DRUGS (5)
  1. LORAZEPAM. [Concomitant]
     Active Substance: LORAZEPAM
     Route: 048
  2. LIORESAL [Suspect]
     Active Substance: BACLOFEN
     Indication: MUSCLE SPASTICITY
     Dosage: 1599.5 ?G, \DAY
     Route: 037
     Dates: start: 20150402
  3. DIAZEPAM. [Concomitant]
     Active Substance: DIAZEPAM
     Route: 048
  4. FOSPHENYTOIN [Concomitant]
     Active Substance: FOSPHENYTOIN\FOSPHENYTOIN SODIUM
     Route: 048
  5. OXCARBAZEPINE. [Concomitant]
     Active Substance: OXCARBAZEPINE
     Dosage: UNK
     Route: 048

REACTIONS (18)
  - Seizure [None]
  - Underdose [Unknown]
  - Unresponsive to stimuli [Unknown]
  - Insomnia [Unknown]
  - Respiratory arrest [Unknown]
  - Autonomic nervous system imbalance [Unknown]
  - Drug withdrawal syndrome [Unknown]
  - Hypotonia [Unknown]
  - Irritability [Unknown]
  - Hyperhidrosis [Unknown]
  - Overdose [Unknown]
  - Hypopnoea [Unknown]
  - Device failure [Unknown]
  - Bradycardia [Unknown]
  - Infusion site mass [Unknown]
  - Dyspnoea [Unknown]
  - Coma [Unknown]
  - Restlessness [Unknown]
